FAERS Safety Report 13688702 (Version 3)
Quarter: 2017Q3

REPORT INFORMATION
  Report Type: Spontaneous
  Country: JP (occurrence: JP)
  Receive Date: 20170626
  Receipt Date: 20170726
  Transmission Date: 20171127
  Serious: Yes (Hospitalization)
  Sender: FDA-Public Use
  Company Number: JP-ELI_LILLY_AND_COMPANY-JP201706007057

PATIENT
  Age: 38 Year
  Sex: Female
  Weight: 47 kg

DRUGS (8)
  1. SINSERON [Concomitant]
     Active Substance: INDISETRON HYDROCHLORIDE
     Indication: PROPHYLAXIS OF NAUSEA AND VOMITING
     Dosage: 8 MG, TID
     Route: 048
     Dates: start: 20170517, end: 20170607
  2. ALOXI [Concomitant]
     Active Substance: PALONOSETRON HYDROCHLORIDE
     Indication: PROPHYLAXIS OF NAUSEA AND VOMITING
     Dosage: UNK
     Route: 041
     Dates: start: 20170517, end: 20170607
  3. 5-FU                               /00098801/ [Concomitant]
     Active Substance: FLUOROURACIL
     Indication: RECTAL CANCER STAGE III
     Dosage: 3200 MG, DAY1-3,EVERY 2 WEEK
     Route: 041
     Dates: start: 20170517, end: 20170607
  4. LEVOFOLINATE CALCIUM [Concomitant]
     Active Substance: LEVOLEUCOVORIN CALCIUM
     Indication: RECTAL CANCER STAGE III
     Dosage: UNK
     Route: 041
     Dates: start: 20170517, end: 20170607
  5. PROEMEND [Concomitant]
     Active Substance: FOSAPREPITANT
     Indication: PROPHYLAXIS OF NAUSEA AND VOMITING
     Dosage: UNK
     Route: 041
     Dates: start: 20170517, end: 20170607
  6. CYRAMZA [Suspect]
     Active Substance: RAMUCIRUMAB
     Indication: RECTAL CANCER STAGE III
     Dosage: 310 MG, EVERY 2WEEK
     Route: 041
     Dates: start: 20170517, end: 20170607
  7. RESTAMIN                           /00000401/ [Concomitant]
     Active Substance: DIPHENHYDRAMINE
  8. TOPOTECIN [Concomitant]
     Active Substance: IRINOTECAN HYDROCHLORIDE
     Indication: RECTAL CANCER STAGE III
     Dosage: 200 MG, DAY1, EVERY 2 WEEK
     Route: 041
     Dates: start: 20170517, end: 20170607

REACTIONS (3)
  - Cardiac failure congestive [Not Recovered/Not Resolved]
  - Blood pressure increased [Recovered/Resolved]
  - Bone marrow failure [Recovered/Resolved]

NARRATIVE: CASE EVENT DATE: 20170531
